FAERS Safety Report 7043704-7 (Version None)
Quarter: 2010Q4

REPORT INFORMATION
  Report Type: 
  Country: None (occurrence: None)
  Receive Date: 20101013
  Receipt Date: 20101004
  Transmission Date: 20110411
  Serious: Yes (Death)
  Sender: FDA-Public Use
  Company Number: KR-ACTELION-A-CH2010-40288

PATIENT
  Age: 57 Year
  Sex: Female

DRUGS (1)
  1. TRACLEER [Suspect]
     Indication: PULMONARY ARTERIAL HYPERTENSION
     Dosage: 62.5 MG, BID
     Route: 048
     Dates: end: 20100926

REACTIONS (7)
  - ABSCESS DRAINAGE [None]
  - ARTHRITIS BACTERIAL [None]
  - ARTHRITIS INFECTIVE [None]
  - OEDEMA [None]
  - PYREXIA [None]
  - RASH [None]
  - SEPSIS [None]
